FAERS Safety Report 22117262 (Version 4)
Quarter: 2023Q2

REPORT INFORMATION
  Report Type: Report from Study
  Country: US (occurrence: US)
  Receive Date: 20230320
  Receipt Date: 20230520
  Transmission Date: 20230722
  Serious: Yes (Other)
  Sender: FDA-Public Use
  Company Number: US-JAZZ PHARMACEUTICALS-2023-US-002696

PATIENT
  Sex: Female

DRUGS (4)
  1. XYWAV [Suspect]
     Active Substance: CALCIUM OXYBATE\MAGNESIUM OXYBATE\POTASSIUM OXYBATE\SODIUM OXYBATE
     Indication: Hypersomnia
     Dosage: 4.5 GRAM, QD
  2. XYWAV [Suspect]
     Active Substance: CALCIUM OXYBATE\MAGNESIUM OXYBATE\POTASSIUM OXYBATE\SODIUM OXYBATE
     Dosage: 5 GRAM, QD
  3. XYWAV [Suspect]
     Active Substance: CALCIUM OXYBATE\MAGNESIUM OXYBATE\POTASSIUM OXYBATE\SODIUM OXYBATE
     Dosage: 4.5 GRAM, BID
  4. XYWAV [Suspect]
     Active Substance: CALCIUM OXYBATE\MAGNESIUM OXYBATE\POTASSIUM OXYBATE\SODIUM OXYBATE
     Dosage: 5.5 GRAM, QD

REACTIONS (19)
  - Hypnopompic hallucination [Unknown]
  - Migraine [Unknown]
  - Sciatica [Unknown]
  - Illness [Unknown]
  - Nausea [Unknown]
  - Headache [Unknown]
  - Feeling abnormal [Unknown]
  - Somnolence [Unknown]
  - Dizziness [Unknown]
  - Balance disorder [Unknown]
  - Muscle spasms [Unknown]
  - Lethargy [Unknown]
  - Vomiting [Unknown]
  - Disturbance in attention [Unknown]
  - Intentional dose omission [Unknown]
  - Intentional product use issue [Unknown]
  - Contraindicated product administered [Unknown]
  - Product administration interrupted [Unknown]
  - Intentional product use issue [Unknown]
